FAERS Safety Report 14097275 (Version 1)
Quarter: 2017Q4

REPORT INFORMATION
  Report Type: Spontaneous
  Country: US (occurrence: US)
  Receive Date: 20171016
  Receipt Date: 20171016
  Transmission Date: 20180321
  Serious: Yes (Other)
  Sender: FDA-Public Use
  Company Number: None

PATIENT
  Age: 39 Year
  Sex: Female
  Weight: 76.5 kg

DRUGS (1)
  1. NOVOLOG [Suspect]
     Active Substance: INSULIN ASPART
     Indication: TYPE 1 DIABETES MELLITUS
     Dates: start: 20170301

REACTIONS (4)
  - Accidental exposure to product [None]
  - Blood glucose decreased [None]
  - Product packaging confusion [None]
  - Wrong drug administered [None]

NARRATIVE: CASE EVENT DATE: 20170828
